FAERS Safety Report 4475722-7 (Version None)
Quarter: 2004Q4

REPORT INFORMATION
  Report Type: 
  Country: None (occurrence: None)
  Receive Date: 20041015
  Receipt Date: 20041006
  Transmission Date: 20050328
  Serious: Yes (Hospitalization, Other)
  Sender: FDA-Public Use
  Company Number: PHHO2004AT14094

PATIENT
  Sex: Male

DRUGS (18)
  1. CLOZARIL [Suspect]
     Indication: SCHIZOPHRENIA, PARANOID TYPE
     Dosage: UNKNOWN
  2. HALOPERIDOL [Concomitant]
  3. RISPERIDONE [Concomitant]
  4. ZYPREXA [Concomitant]
  5. SEROQUEL [Concomitant]
  6. ABILIFY [Concomitant]
  7. DOMINAL [Concomitant]
  8. MELLARIL [Concomitant]
  9. DIAZEPAM [Concomitant]
  10. AQUAPHORIL [Concomitant]
  11. MELPERON [Concomitant]
  12. PANTOPRAZOLE [Concomitant]
  13. MAGNESIUM [Concomitant]
  14. BAMBEC [Concomitant]
  15. THEOPHYLLINE [Concomitant]
  16. APREDNISLON [Concomitant]
  17. SOLIAN [Concomitant]
  18. QUETIAPINE [Concomitant]

REACTIONS (4)
  - HEPATIC ENZYME INCREASED [None]
  - HYPOKALAEMIA [None]
  - PSYCHOTIC DISORDER [None]
  - RESPIRATORY TRACT INFECTION [None]
